FAERS Safety Report 20024218 (Version 3)
Quarter: 2023Q1

REPORT INFORMATION
  Report Type: Report from Study
  Country: ES (occurrence: ES)
  Receive Date: 20211102
  Receipt Date: 20230331
  Transmission Date: 20230417
  Serious: Yes (Life-Threatening, Hospitalization, Other)
  Sender: FDA-Public Use
  Company Number: ES-AstraZeneca-2021A397871

PATIENT
  Age: 5 Year
  Sex: Female
  Weight: 22.5 kg

DRUGS (38)
  1. REMIFENTANIL [Suspect]
     Active Substance: REMIFENTANIL
     Indication: Withdrawal syndrome
     Dosage: 0.5 MCG/KG CONTINUOUS/MIN
     Route: 042
     Dates: start: 20210405, end: 20210407
  2. REMIFENTANIL [Suspect]
     Active Substance: REMIFENTANIL
     Dosage: 5 MILLIGRAM, PRN
     Route: 042
     Dates: start: 20210408, end: 20210411
  3. DEXMEDETOMIDINE [Suspect]
     Active Substance: DEXMEDETOMIDINE
     Indication: Product used for unknown indication
     Dosage: UNK
     Route: 065
  4. MIDAZOLAM [Suspect]
     Active Substance: MIDAZOLAM
     Indication: Sedative therapy
     Dosage: 4.1 MILLIGRAM/KILOGRAM, QH
     Route: 042
     Dates: start: 20210329, end: 20210404
  5. MIDAZOLAM [Suspect]
     Active Substance: MIDAZOLAM
     Dosage: 0.34 MILLIGRAM/KILOGRAM, QH
     Route: 042
     Dates: start: 20210402, end: 20210403
  6. MIDAZOLAM [Suspect]
     Active Substance: MIDAZOLAM
     Dosage: 2.5 MILLIGRAM, PRN
     Route: 042
     Dates: start: 20210402, end: 20210403
  7. FENTANYL [Suspect]
     Active Substance: FENTANYL
     Indication: Product used for unknown indication
     Dosage: 3.5 MICROGRAM/KILOGRAM, QH
     Route: 042
     Dates: start: 20210329, end: 20210402
  8. FENTANYL [Suspect]
     Active Substance: FENTANYL
     Dosage: 25 MICROGRAM, PRN
     Route: 042
     Dates: start: 20210403
  9. FENTANYL [Suspect]
     Active Substance: FENTANYL
     Dosage: 2.5 MICROGRAM/KILOGRAM, QH
     Route: 042
     Dates: start: 20210403, end: 20210405
  10. FENTANYL [Suspect]
     Active Substance: FENTANYL
     Dosage: 30 MICROGRAM, PRN
     Route: 042
     Dates: start: 20210329, end: 20210402
  11. KETAMINE [Suspect]
     Active Substance: KETAMINE
     Indication: Sedative therapy
     Dosage: 3.8 MILLIGRAM/KILOGRAM, QH
     Route: 042
     Dates: start: 20210402, end: 20210403
  12. KETAMINE [Suspect]
     Active Substance: KETAMINE
     Dosage: 1.3 MICROGRAM/KILOGRAM, QH
     Route: 042
     Dates: start: 20210330
  13. KETAMINE [Suspect]
     Active Substance: KETAMINE
     Dosage: 25 MICROGRAM, PRN
     Route: 042
     Dates: start: 20210402, end: 20210403
  14. MOVANTIK [Suspect]
     Active Substance: NALOXEGOL OXALATE
     Indication: Product used for unknown indication
     Dosage: 2 DOSAGE FORM
     Route: 048
  15. MOVANTIK [Suspect]
     Active Substance: NALOXEGOL OXALATE
     Dosage: 2 DOSAGE FORM
     Route: 048
  16. MOVANTIK [Suspect]
     Active Substance: NALOXEGOL OXALATE
     Dosage: UNK
     Route: 048
  17. PROPOFOL [Suspect]
     Active Substance: PROPOFOL
     Indication: Product used for unknown indication
     Dosage: 20 MILLIGRAM, PRN
     Route: 042
     Dates: start: 20210401, end: 20210403
  18. SEVOFLURANE [Suspect]
     Active Substance: SEVOFLURANE
     Indication: Sedative therapy
     Dosage: 10 MILLILITER, 1X/HOUR
     Route: 048
     Dates: start: 20210403, end: 20210407
  19. SEVOFLURANE [Suspect]
     Active Substance: SEVOFLURANE
     Dosage: 0.15 MICROGRAM.KG, CONTINUOUS/MIN
     Route: 048
     Dates: start: 20210405, end: 20210407
  20. SEVOFLURANE [Suspect]
     Active Substance: SEVOFLURANE
     Dosage: 0.2 MILLILITER, PRN
     Route: 048
     Dates: start: 20210403
  21. CLORAZEPATE DIPOTASSIUM [Suspect]
     Active Substance: CLORAZEPATE DIPOTASSIUM
     Indication: Product used for unknown indication
     Dosage: UNK
     Route: 065
  22. POLYETHYLENE GLYCOLS [Concomitant]
     Active Substance: POLYETHYLENE GLYCOLS
     Indication: Constipation
     Dosage: 6.9 GRAM, TID
     Route: 065
     Dates: start: 20210408
  23. ONDANSETRON [Concomitant]
     Active Substance: ONDANSETRON
     Indication: Prophylaxis
     Dosage: 25 MILLIGRAM, 4X/DAY
     Route: 042
     Dates: start: 20210329
  24. ONDANSETRON [Concomitant]
     Active Substance: ONDANSETRON
     Indication: Feeding intolerance
     Dosage: 4 MILLIGRAM, PRN
     Route: 042
     Dates: start: 20210403
  25. CISATRACURIUM [Concomitant]
     Active Substance: CISATRACURIUM
     Indication: Sedative therapy
     Dosage: 3 MICROGRAM PER MILLIGRAM, CONTINUOUS/MIN
     Route: 042
     Dates: start: 20210329, end: 20210404
  26. ACETAMINOPHEN [Concomitant]
     Active Substance: ACETAMINOPHEN
     Indication: Sedative therapy
     Dosage: 15 MILLIGRAM, PRN
     Route: 042
     Dates: start: 20210329, end: 20210404
  27. ACETAMINOPHEN [Concomitant]
     Active Substance: ACETAMINOPHEN
     Indication: Analgesic therapy
     Dosage: 350 MILLIGRAM, 4X/DAY
     Route: 042
     Dates: start: 20210329
  28. AMOXICILLIN\CLAVULANIC ACID [Concomitant]
     Active Substance: AMOXICILLIN\CLAVULANIC ACID
     Indication: Prophylaxis
     Dosage: 575 MILLIGRAM, TID
     Route: 042
     Dates: start: 20210330, end: 20210403
  29. AMOXICILLIN\CLAVULANIC ACID [Concomitant]
     Active Substance: AMOXICILLIN\CLAVULANIC ACID
     Dosage: 600 MILLIGRAM, 4X/DAY
     Route: 042
     Dates: start: 20210403
  30. ACETAZOLAMIDE [Concomitant]
     Active Substance: ACETAZOLAMIDE
     Indication: Upper airway obstruction
     Dosage: 120 MILLIGRAM, BID
     Route: 042
     Dates: start: 20210331, end: 20210403
  31. ACETAZOLAMIDE [Concomitant]
     Active Substance: ACETAZOLAMIDE
     Indication: Fistula
     Dosage: 5 MILLIGRAM, PRN
     Route: 042
     Dates: start: 20210403, end: 20210403
  32. RANITIDINE [Concomitant]
     Active Substance: RANITIDINE
     Indication: Product used for unknown indication
     Dosage: 25 MILLIGRAM, 4X/DAY
     Route: 042
     Dates: start: 20210329
  33. FUROSEMIDE [Concomitant]
     Active Substance: FUROSEMIDE
     Indication: Hypervolaemia
     Dosage: 5 MILLIGRAM, TID
     Route: 065
     Dates: start: 20210331
  34. ROCURONIUM [Concomitant]
     Active Substance: ROCURONIUM BROMIDE
     Indication: Upper airway obstruction
     Dosage: 15 MILLIGRAM, PRN
     Route: 065
     Dates: start: 20210329, end: 20210404
  35. ROCURONIUM [Concomitant]
     Active Substance: ROCURONIUM BROMIDE
     Dosage: 7 MILLIGRAM, PRN
     Route: 042
     Dates: start: 20210403, end: 20210404
  36. BUDESONIDE [Concomitant]
     Active Substance: BUDESONIDE
     Indication: Upper airway obstruction
     Dosage: 2 MILLIGRAM, ONCE
     Route: 065
     Dates: start: 20210403, end: 20210403
  37. DEXAMETHASONE [Concomitant]
     Active Substance: DEXAMETHASONE
     Indication: Product used for unknown indication
     Dosage: 4 MILLIGRAM, TID (4 MG, 3X/DAY)
     Route: 065
     Dates: start: 20210404
  38. EPINEPHRINE [Concomitant]
     Active Substance: EPINEPHRINE
     Indication: Product used for unknown indication
     Dosage: UNK
     Route: 065

REACTIONS (3)
  - Withdrawal syndrome [Recovered/Resolved]
  - Laryngeal obstruction [Recovered/Resolved]
  - Off label use [Unknown]

NARRATIVE: CASE EVENT DATE: 20210403
